FAERS Safety Report 8926092 (Version 1)
Quarter: 2012Q4

REPORT INFORMATION
  Report Type: 
  Country: DE (occurrence: DE)
  Receive Date: 20121126
  Receipt Date: 20121126
  Transmission Date: 20130627
  Serious: Yes (Hospitalization)
  Sender: FDA-Public Use
  Company Number: DE-AMGEN-DEUSP2012075644

PATIENT
  Sex: Female

DRUGS (3)
  1. ENBREL [Suspect]
     Indication: RHEUMATOID ARTHRITIS
     Dosage: UNK
     Dates: start: 201206
  2. ENBREL [Suspect]
     Dosage: 50 mg, weekly
     Route: 058
     Dates: start: 20010929, end: 201204
  3. MTX                                /00113801/ [Concomitant]
     Dosage: UNK

REACTIONS (5)
  - Rash pustular [Unknown]
  - Pruritus [Unknown]
  - Breast tenderness [Unknown]
  - Herpes zoster [Unknown]
  - Varicella [Unknown]
